FAERS Safety Report 5318534-4 (Version None)
Quarter: 2007Q2

REPORT INFORMATION
  Report Type: 
  Country: None (occurrence: None)
  Receive Date: 20070501
  Receipt Date: 20070417
  Transmission Date: 20071010
  Serious: Yes (Other)
  Sender: FDA-Public Use
  Company Number: 2007S1002281

PATIENT
  Age: 58 Year
  Sex: Male

DRUGS (5)
  1. PHENYTOIN SODIUM [Suspect]
     Indication: CONVULSION
     Dosage: 500 MG; DAILY; ORAL
     Route: 048
     Dates: start: 20050906
  2. OLMESARTAN (CON.) [Concomitant]
  3. ATORVASTATIN (CON.) [Concomitant]
  4. CETIRIZINE (CON.) [Concomitant]
  5. ACETAMINOPHEN W/HYDROCODONE (CON.) [Concomitant]

REACTIONS (3)
  - CONVULSION [None]
  - LOSS OF CONSCIOUSNESS [None]
  - MALAISE [None]
